FAERS Safety Report 5245361-9 (Version None)
Quarter: 2007Q1

REPORT INFORMATION
  Report Type: 
  Country: None (occurrence: None)
  Receive Date: 20070223
  Receipt Date: 20070205
  Transmission Date: 20070707
  Serious: Yes (Disabling)
  Sender: FDA-Public Use
  Company Number: HQWYE052208FEB07

PATIENT
  Sex: Female

DRUGS (1)
  1. EFFEXOR XR [Suspect]
     Indication: AFFECT LABILITY
     Dosage: UNKNOWN
     Route: 048
     Dates: start: 20010101, end: 20061101

REACTIONS (19)
  - APATHY [None]
  - COGNITIVE DISORDER [None]
  - COMMUNICATION DISORDER [None]
  - COORDINATION ABNORMAL [None]
  - DEPRESSION [None]
  - DISTRACTIBILITY [None]
  - DISTURBANCE IN ATTENTION [None]
  - HYPERHIDROSIS [None]
  - IMPAIRED WORK ABILITY [None]
  - IMPULSIVE BEHAVIOUR [None]
  - LIBIDO DECREASED [None]
  - MEMORY IMPAIRMENT [None]
  - NIGHTMARE [None]
  - PARAESTHESIA [None]
  - PSYCHOMOTOR SKILLS IMPAIRED [None]
  - SOCIAL AVOIDANT BEHAVIOUR [None]
  - UNEVALUABLE EVENT [None]
  - VISUAL DISTURBANCE [None]
  - VOMITING [None]
